FAERS Safety Report 7700021-7 (Version None)
Quarter: 2011Q3

REPORT INFORMATION
  Report Type: 
  Country: None (occurrence: None)
  Receive Date: 20110822
  Receipt Date: 20110808
  Transmission Date: 20111222
  Serious: Yes (Hospitalization)
  Sender: FDA-Public Use
  Company Number: US-ELI_LILLY_AND_COMPANY-US201108003608

PATIENT
  Sex: Male

DRUGS (3)
  1. ZYPREXA RELPREVV [Suspect]
     Indication: SCHIZOPHRENIA
     Dosage: 405 MG, MONTHLY
     Route: 030
     Dates: start: 20110406
  2. FLUOXETINE [Concomitant]
  3. ZYPREXA ZYDIS [Suspect]
     Indication: SCHIZOPHRENIA
     Dosage: 10 MG, NIGHTLY

REACTIONS (3)
  - HALLUCINATION, AUDITORY [None]
  - DISTURBANCE IN SOCIAL BEHAVIOUR [None]
  - OVERDOSE [None]
